FAERS Safety Report 19780453 (Version 1)
Quarter: 2021Q3

REPORT INFORMATION
  Report Type: Spontaneous
  Country: NL (occurrence: NL)
  Receive Date: 20210902
  Receipt Date: 20210902
  Transmission Date: 20211014
  Serious: Yes (Other)
  Sender: FDA-Public Use
  Company Number: NL-AUROBINDO-AUR-APL-2021-027514

PATIENT
  Age: 39 Year
  Sex: Female
  Weight: 54 kg

DRUGS (7)
  1. COVID?19 VACCINE NOS. [Suspect]
     Active Substance: COVID-19 VACCINE NOS
     Indication: COVID-19 IMMUNISATION
     Dosage: UNK
     Route: 065
     Dates: start: 20210517
  2. NALCROM [Concomitant]
     Active Substance: CROMOLYN SODIUM
     Indication: PRODUCT USED FOR UNKNOWN INDICATION
     Dosage: 200 MILLIGRAM(DRANK, 200 MG (MILLIGRAM) )
     Route: 065
  3. CROMOGLICIN [Concomitant]
     Indication: PRODUCT USED FOR UNKNOWN INDICATION
     Dosage: NOSE SPRAY, 20 MG/ML (MILLIGRAM PER MILLILITER)
     Route: 065
  4. CETIRIZINE 10 MG FILM COATED TABLET [Suspect]
     Active Substance: CETIRIZINE HYDROCHLORIDE
     Indication: PRODUCT USED FOR UNKNOWN INDICATION
     Dosage: UNK(1 X PER DAY 1 PIECE, DURING 3 DAYS)
     Route: 065
     Dates: start: 20210517
  5. ZOELY [Concomitant]
     Active Substance: ESTRADIOL\NOMEGESTROL ACETATE
     Indication: PRODUCT USED FOR UNKNOWN INDICATION
     Dosage: TABLET, 1,5/2,5 MG (MILLIGRAM)
     Route: 065
  6. CROMOGLICIN [Concomitant]
     Indication: PRODUCT USED FOR UNKNOWN INDICATION
     Dosage: UNK(2 X PER DAY 1 SPRAY PER NOSTRIL)
     Route: 065
     Dates: start: 2019
  7. NALCROM [Concomitant]
     Active Substance: CROMOLYN SODIUM
     Indication: PRODUCT USED FOR UNKNOWN INDICATION
     Dosage: 3 X A DAY 1 PIECE
     Route: 065
     Dates: start: 2019

REACTIONS (17)
  - Burning sensation mucosal [Recovered/Resolved]
  - Headache [Recovering/Resolving]
  - Retching [Recovering/Resolving]
  - Nausea [Recovering/Resolving]
  - Chills [Recovering/Resolving]
  - Fatigue [Not Recovered/Not Resolved]
  - Tachycardia [Recovering/Resolving]
  - Ocular discomfort [Recovered/Resolved]
  - Malaise [Not Recovered/Not Resolved]
  - Injection site inflammation [Recovering/Resolving]
  - Diarrhoea [Recovering/Resolving]
  - Injection site pain [Recovering/Resolving]
  - Skin burning sensation [Recovered/Resolved]
  - Pyrexia [Not Recovered/Not Resolved]
  - Dyspnoea [Recovered/Resolved]
  - Injection site warmth [Recovering/Resolving]
  - Injection site haematoma [Recovering/Resolving]

NARRATIVE: CASE EVENT DATE: 20210517
